FAERS Safety Report 26207363 (Version 1)
Quarter: 2025Q4

REPORT INFORMATION
  Report Type: Spontaneous
  Country: CN (occurrence: CN)
  Receive Date: 20251229
  Receipt Date: 20251229
  Transmission Date: 20260118
  Serious: Yes (Other)
  Sender: ROCHE
  Company Number: CN-ROCHE-10000464569

PATIENT
  Age: 59 Year
  Sex: Male

DRUGS (2)
  1. FARICIMAB [Suspect]
     Active Substance: FARICIMAB
     Indication: Age-related macular degeneration
  2. FARICIMAB [Suspect]
     Active Substance: FARICIMAB
     Indication: Haematocrit

REACTIONS (1)
  - Retinal haemorrhage [Unknown]
